FAERS Safety Report 7287973-7 (Version None)
Quarter: 2011Q1

REPORT INFORMATION
  Report Type: 
  Country: None (occurrence: None)
  Receive Date: 20110211
  Receipt Date: 20110208
  Transmission Date: 20110831
  Serious: Yes (Death, Other)
  Sender: FDA-Public Use
  Company Number: US-AMGEN-USASP2011007001

PATIENT
  Sex: Male

DRUGS (2)
  1. NPLATE [Suspect]
     Indication: IDIOPATHIC THROMBOCYTOPENIC PURPURA
     Dosage: 4 A?G/KG, UNK
     Dates: start: 20100826, end: 20101007
  2. NPLATE [Suspect]
     Indication: MYELODYSPLASTIC SYNDROME
     Dates: start: 20100826, end: 20101007

REACTIONS (5)
  - MYELODYSPLASTIC SYNDROME [None]
  - HAEMATOLOGICAL MALIGNANCY [None]
  - DRUG INEFFECTIVE [None]
  - NEUTROPENIC SEPSIS [None]
  - INFECTION [None]
